FAERS Safety Report 4490472-9 (Version None)
Quarter: 2004Q4

REPORT INFORMATION
  Report Type: 
  Country: None (occurrence: None)
  Receive Date: 20041028
  Receipt Date: 20041018
  Transmission Date: 20050328
  Serious: Yes (Other)
  Sender: FDA-Public Use
  Company Number: 2004240091GB

PATIENT
  Age: 33 Year
  Sex: Female

DRUGS (4)
  1. SYNAREL [Suspect]
     Indication: IN VITRO FERTILISATION
     Dosage: NASAL
     Route: 045
     Dates: start: 20040101
  2. CYCLOGEST ^COLLINS^ [Concomitant]
  3. GONADOTROPHIN CHORIONIC (CHORIONIC GONADOTROPHIN) [Concomitant]
  4. GONAL-F [Concomitant]

REACTIONS (2)
  - BLINDNESS [None]
  - OPTIC NEURITIS [None]
